FAERS Safety Report 4407304-7 (Version None)
Quarter: 2004Q3

REPORT INFORMATION
  Report Type: 
  Country: None (occurrence: None)
  Receive Date: 20040721
  Receipt Date: 20040708
  Transmission Date: 20050211
  Serious: Yes (Death)
  Sender: FDA-Public Use
  Company Number: US-JNJFOC-20040702293

PATIENT
  Age: 46 Year
  Sex: Female

DRUGS (1)
  1. DURAGESIC [Suspect]
     Dosage: 50 UG/HR, 1 IN 72 HOUR, TRANSDERMAL
     Route: 062

REACTIONS (1)
  - INTENTIONAL MISUSE [None]
